FAERS Safety Report 5129524-9 (Version None)
Quarter: 2006Q4

REPORT INFORMATION
  Report Type: 
  Country: None (occurrence: None)
  Receive Date: 20061012
  Receipt Date: 20060126
  Transmission Date: 20070319
  Serious: No
  Sender: FDA-Public Use
  Company Number: 06021674

PATIENT
  Age: 63 Year
  Sex: Male

DRUGS (2)
  1. FLUOCINONIDE CREAM USP, 0.05% 15 G [Suspect]
     Indication: PRURITUS
     Dosage: TOPICAL
     Route: 061
  2. PROTONIX [Concomitant]

REACTIONS (2)
  - OESOPHAGEAL HAEMORRHAGE [None]
  - THROMBOCYTOPENIA [None]
